FAERS Safety Report 5138728-0 (Version None)
Quarter: 2006Q4

REPORT INFORMATION
  Report Type: 
  Country: None (occurrence: None)
  Receive Date: 20061030
  Receipt Date: 20060727
  Transmission Date: 20070319
  Serious: Yes (Hospitalization)
  Sender: FDA-Public Use
  Company Number: FR-MERCK-0607FRA00062

PATIENT
  Age: 6 Year
  Sex: Female

DRUGS (4)
  1. SINGULAIR [Suspect]
     Indication: BRONCHIAL HYPERREACTIVITY
     Route: 048
     Dates: start: 20051004, end: 20060706
  2. FLUTICASONE PROPIONATE AND SALMETEROL XINAFOATE [Concomitant]
     Indication: BRONCHIAL HYPERREACTIVITY
     Route: 055
     Dates: start: 20050530
  3. ESOMEPRAZOLE MAGNESIUM [Concomitant]
     Indication: GASTROOESOPHAGEAL REFLUX DISEASE
     Route: 048
     Dates: start: 20051121
  4. ALBUTEROL SULFATE [Concomitant]
     Indication: BRONCHIAL HYPERREACTIVITY
     Route: 055
     Dates: start: 20040501

REACTIONS (2)
  - HAEMATOMA [None]
  - PLATELET ADHESIVENESS DECREASED [None]
